FAERS Safety Report 6620426-5 (Version None)
Quarter: 2010Q1

REPORT INFORMATION
  Report Type: 
  Country: None (occurrence: None)
  Receive Date: 20100223
  Receipt Date: 20091217
  Transmission Date: 20100710
  Serious: No
  Sender: FDA-Public Use
  Company Number: 003443

PATIENT
  Sex: Male
  Weight: 91.6 kg

DRUGS (5)
  1. CIMZIA [Suspect]
     Indication: CROHN'S DISEASE
     Dosage: 400 MG SUBCUTANEOUS
     Route: 058
     Dates: start: 20090101
  2. INDERALL [Concomitant]
  3. LOMOTIL [Concomitant]
  4. TESTIM [Concomitant]
  5. BUPROPION HCL [Concomitant]

REACTIONS (4)
  - COUGH [None]
  - INFLUENZA LIKE ILLNESS [None]
  - THROAT IRRITATION [None]
  - UPPER RESPIRATORY TRACT INFLAMMATION [None]
